FAERS Safety Report 11082717 (Version 1)
Quarter: 2015Q2

REPORT INFORMATION
  Report Type: Spontaneous
  Country: US (occurrence: US)
  Receive Date: 20150501
  Receipt Date: 20150501
  Transmission Date: 20150821
  Serious: No
  Sender: FDA-Public Use
  Company Number: US-ABBVIE-14P-163-1235970-00

PATIENT
  Sex: Male
  Weight: 102.15 kg

DRUGS (11)
  1. ANDROGEL [Suspect]
     Active Substance: TESTOSTERONE
     Dosage: 1 PUMP DAILY
     Route: 061
     Dates: start: 2014, end: 2014
  2. ANDROGEL [Suspect]
     Active Substance: TESTOSTERONE
     Dosage: TAKING IN EVENING
     Route: 061
     Dates: start: 2014, end: 2014
  3. REMICADE [Concomitant]
     Active Substance: INFLIXIMAB
     Route: 042
  4. ANDROGEL [Suspect]
     Active Substance: TESTOSTERONE
     Route: 061
     Dates: start: 2014
  5. ANDROGEL [Suspect]
     Active Substance: TESTOSTERONE
     Dosage: 3-4 PUMPS DAILY
     Route: 061
     Dates: start: 2014
  6. ANDROGEL [Suspect]
     Active Substance: TESTOSTERONE
     Indication: BLOOD TESTOSTERONE DECREASED
     Route: 061
     Dates: start: 2004, end: 2013
  7. CLONAZEPAM. [Concomitant]
     Active Substance: CLONAZEPAM
     Indication: RESTLESS LEGS SYNDROME
  8. ANDROGEL [Suspect]
     Active Substance: TESTOSTERONE
     Indication: BLOOD TESTOSTERONE DECREASED
     Dosage: 2 PUMPS DAILY
     Route: 061
     Dates: start: 2013, end: 2014
  9. ANDROGEL [Suspect]
     Active Substance: TESTOSTERONE
     Dosage: 1 PUMP 1 DAY, 2 ANOTHER DAY, ALTERNATING DAYS
     Route: 061
     Dates: start: 2014, end: 2014
  10. REMICADE [Concomitant]
     Active Substance: INFLIXIMAB
     Indication: SARCOIDOSIS
     Route: 042
     Dates: start: 2007
  11. ANDROGEL [Suspect]
     Active Substance: TESTOSTERONE
     Dosage: 2 PUMPS DAILY
     Route: 061
     Dates: end: 201401

REACTIONS (14)
  - Hypersomnia [Not Recovered/Not Resolved]
  - Therapeutic response unexpected [Recovered/Resolved]
  - Weight decreased [Recovered/Resolved]
  - Weight increased [Not Recovered/Not Resolved]
  - Drug administration error [Not Recovered/Not Resolved]
  - Therapeutic response unexpected [Not Recovered/Not Resolved]
  - Blood testosterone increased [Recovered/Resolved]
  - Blood testosterone decreased [Not Recovered/Not Resolved]
  - Blood testosterone abnormal [Recovered/Resolved]
  - Energy increased [Recovered/Resolved]
  - Lethargy [Recovering/Resolving]
  - Drug ineffective [Not Recovered/Not Resolved]
  - Prostatic specific antigen increased [Not Recovered/Not Resolved]
  - Haematocrit increased [Unknown]

NARRATIVE: CASE EVENT DATE: 2012
